FAERS Safety Report 9486155 (Version 1)
Quarter: 2013Q3

REPORT INFORMATION
  Report Type: Spontaneous
  Country: US (occurrence: US)
  Receive Date: 20130829
  Receipt Date: 20130829
  Transmission Date: 20140515
  Serious: No
  Sender: FDA-Public Use
  Company Number: US-TEVA-429040USA

PATIENT
  Age: 88 Year
  Sex: Male

DRUGS (4)
  1. AZILECT [Suspect]
     Indication: PARKINSON^S DISEASE
     Route: 065
  2. ROPINIROLE [Suspect]
     Indication: PARKINSON^S DISEASE
     Route: 065
  3. LEVODOPA [Suspect]
     Indication: PARKINSON^S DISEASE
     Route: 065
  4. LEVODOPA [Suspect]
     Indication: PARKINSON^S DISEASE
     Route: 065

REACTIONS (2)
  - Freezing phenomenon [Recovered/Resolved]
  - Paradoxical drug reaction [Recovered/Resolved]
